FAERS Safety Report 7926786-7 (Version None)
Quarter: 2011Q4

REPORT INFORMATION
  Report Type: 
  Country: None (occurrence: None)
  Receive Date: 20111118
  Receipt Date: 20111107
  Transmission Date: 20120403
  Serious: Yes (Hospitalization, Other)
  Sender: FDA-Public Use
  Company Number: US-BAYER-2011-052630

PATIENT
  Age: 47 Year
  Sex: Female
  Weight: 47.166 kg

DRUGS (20)
  1. FLONASE [Concomitant]
     Indication: SEASONAL ALLERGY
  2. MICROGESTIN 1.5/30 [Concomitant]
     Dosage: UNK
     Dates: start: 20070101
  3. MICROGESTIN 1.5/30 [Concomitant]
     Dosage: UNK
     Dates: start: 20080101
  4. DROSPIRENONE AND ETHINYL ESTRADIOL [Suspect]
     Indication: PREMENSTRUAL SYNDROME
  5. MOTRIN [Concomitant]
  6. MICROGESTIN 1.5/30 [Concomitant]
     Dosage: UNK
     Dates: start: 20091201, end: 20100501
  7. YASMIN [Suspect]
     Indication: ACNE
     Dosage: UNK
     Dates: start: 20090101
  8. WELLBUTRIN [Concomitant]
     Indication: MOOD ALTERED
  9. MICROGESTIN 1.5/30 [Concomitant]
     Dosage: UNK
     Dates: start: 20090301
  10. YAZ [Suspect]
     Indication: ACNE
     Dosage: UNK
     Dates: start: 20090101
  11. MICROGESTIN 1.5/30 [Concomitant]
     Dosage: UNK
     Dates: start: 20050101
  12. YAZ [Suspect]
     Indication: PREMENSTRUAL SYNDROME
  13. YASMIN [Suspect]
     Indication: PREMENSTRUAL SYNDROME
  14. MICROGESTIN 1.5/30 [Concomitant]
     Dosage: UNK
     Dates: start: 20060101
  15. DROSPIRENONE AND ETHINYL ESTRADIOL [Suspect]
     Indication: ACNE
     Dosage: UNK
     Dates: start: 20090101
  16. ANTIBIOTICS [Concomitant]
  17. IBUPROFEN (ADVIL) [Concomitant]
  18. NEURONTIN [Concomitant]
     Indication: NEUROPATHY PERIPHERAL
  19. LAMCTAL [Concomitant]
     Indication: MOOD ALTERED
  20. GABAPENTIN [Concomitant]

REACTIONS (4)
  - CHOLECYSTECTOMY [None]
  - CHOLECYSTITIS CHRONIC [None]
  - PAIN [None]
  - BILIARY DYSKINESIA [None]
